FAERS Safety Report 8372250-3 (Version None)
Quarter: 2012Q2

REPORT INFORMATION
  Report Type: 
  Country: None (occurrence: None)
  Receive Date: 20120521
  Receipt Date: 20110801
  Transmission Date: 20120825
  Serious: No
  Sender: FDA-Public Use
  Company Number: US-BIOGENIDEC-2012BI017451

PATIENT
  Sex: Female

DRUGS (1)
  1. AVONEX [Suspect]
     Indication: ACCIDENTAL EXPOSURE
     Route: 030
     Dates: start: 20110110

REACTIONS (2)
  - BURNING SENSATION [None]
  - ACCIDENTAL EXPOSURE [None]
